FAERS Safety Report 20892706 (Version 4)
Quarter: 2022Q3

REPORT INFORMATION
  Report Type: Spontaneous
  Country: JP (occurrence: JP)
  Receive Date: 20220531
  Receipt Date: 20220811
  Transmission Date: 20221027
  Serious: Yes (Hospitalization)
  Sender: FDA-Public Use
  Company Number: JP-NOVARTISPH-NVSJ2022JP091131

PATIENT
  Age: 36 Year
  Sex: Male
  Weight: 52 kg

DRUGS (5)
  1. GLYCOPYRROLATE\INDACATEROL\MOMETASONE FUROATE [Suspect]
     Active Substance: GLYCOPYRROLATE\INDACATEROL\MOMETASONE FUROATE
     Indication: Asthma
     Dosage: 1 DOSAGE FORM: INDACATEROL ACETATE 150UG, GLYCOPYRRONIUM BROMIDE 50UG, MOMETASONE FUROATE 80UG, QD
     Route: 055
     Dates: start: 20211117, end: 20211120
  2. GLYCOPYRROLATE\INDACATEROL\MOMETASONE FUROATE [Suspect]
     Active Substance: GLYCOPYRROLATE\INDACATEROL\MOMETASONE FUROATE
     Dosage: 1 DOSAGE FORM, QD
     Route: 055
     Dates: start: 20211228, end: 20220228
  3. BIODIASMIN F [Concomitant]
     Indication: Asthma
     Dosage: 1 G, TID
     Route: 048
     Dates: start: 20211117, end: 20211120
  4. DEXTROMETHORPHAN HYDROBROMIDE [Concomitant]
     Active Substance: DEXTROMETHORPHAN HYDROBROMIDE
     Indication: Asthma
     Dosage: 0.2 G, TID
     Route: 048
     Dates: start: 20211117, end: 20211120
  5. ACETAMINOPHEN [Concomitant]
     Active Substance: ACETAMINOPHEN
     Indication: Asthma
     Dosage: 0.5 G, TID
     Route: 048
     Dates: start: 20211117, end: 20211120

REACTIONS (2)
  - Pneumonia [Recovered/Resolved]
  - Drug ineffective [Unknown]

NARRATIVE: CASE EVENT DATE: 20211120
